FAERS Safety Report 15953663 (Version 1)
Quarter: 2019Q1

REPORT INFORMATION
  Report Type: Spontaneous
  Country: IT (occurrence: IT)
  Receive Date: 20190212
  Receipt Date: 20190212
  Transmission Date: 20190417
  Serious: Yes (Life-Threatening, Hospitalization, Other)
  Sender: FDA-Public Use
  Company Number: IT-MYLANLABS-2019M1007411

PATIENT
  Age: 75 Year
  Sex: Male

DRUGS (7)
  1. TRAMADOL. [Interacting]
     Active Substance: TRAMADOL
     Indication: MIXED ANXIETY AND DEPRESSIVE DISORDER
  2. GABAPENTIN. [Interacting]
     Active Substance: GABAPENTIN
     Indication: FIBROMYALGIA
     Dosage: 900 MILLIGRAM
     Route: 065
  3. TRAMADOL. [Interacting]
     Active Substance: TRAMADOL
     Indication: FIBROMYALGIA
     Dosage: 100 MILLIGRAM
     Route: 065
  4. AMITRIPTYLINE [Interacting]
     Active Substance: AMITRIPTYLINE
     Indication: MIXED ANXIETY AND DEPRESSIVE DISORDER
  5. TRAZODONE [Interacting]
     Active Substance: TRAZODONE HYDROCHLORIDE
     Indication: DEPRESSION
     Dosage: 100 MILLIGRAM
  6. AMITRIPTYLINE [Interacting]
     Active Substance: AMITRIPTYLINE
     Indication: DEPRESSION
     Dosage: 50 MILLIGRAM, QD
     Route: 065
  7. TRAMADOL. [Suspect]
     Active Substance: TRAMADOL
     Indication: DEPRESSION
     Dosage: 200 MILLIGRAM
     Route: 065

REACTIONS (2)
  - Drug interaction [Recovered/Resolved]
  - Serotonin syndrome [Recovered/Resolved]
